FAERS Safety Report 22977073 (Version 4)
Quarter: 2023Q4

REPORT INFORMATION
  Report Type: Report from Study
  Country: US (occurrence: US)
  Receive Date: 20230925
  Receipt Date: 20231110
  Transmission Date: 20240110
  Serious: No
  Sender: FDA-Public Use
  Company Number: US-002147023-NVSC2023US202636

PATIENT
  Sex: Male

DRUGS (1)
  1. ENTRESTO [Suspect]
     Active Substance: SACUBITRIL\VALSARTAN
     Indication: Product used for unknown indication
     Dosage: UNK
     Route: 065

REACTIONS (8)
  - Hypoacusis [Unknown]
  - Throat clearing [Unknown]
  - Renal disorder [Unknown]
  - Bone disorder [Unknown]
  - Blood pressure fluctuation [Recovering/Resolving]
  - Swelling [Unknown]
  - Arthralgia [Unknown]
  - Product dose omission issue [Unknown]
